FAERS Safety Report 7598982-2 (Version None)
Quarter: 2011Q3

REPORT INFORMATION
  Report Type: 
  Country: None (occurrence: None)
  Receive Date: 20110711
  Receipt Date: 20110630
  Transmission Date: 20111222
  Serious: No
  Sender: FDA-Public Use
  Company Number: US-BIOGENIDEC-2011BI024523

PATIENT
  Age: 33 Year
  Sex: Female

DRUGS (5)
  1. TYSABRI [Suspect]
     Indication: MULTIPLE SCLEROSIS
     Route: 042
     Dates: start: 20090705
  2. AVONEX [Concomitant]
     Indication: MULTIPLE SCLEROSIS
     Route: 030
     Dates: start: 19990520
  3. TYSABRI [Suspect]
     Route: 042
     Dates: start: 20070305, end: 20081026
  4. TYSABRI [Suspect]
     Route: 042
     Dates: start: 20050101
  5. AVONEX [Concomitant]
     Route: 030

REACTIONS (3)
  - PAIN IN EXTREMITY [None]
  - CELLULITIS [None]
  - OEDEMA PERIPHERAL [None]
